FAERS Safety Report 9798840 (Version 1)
Quarter: 2014Q1

REPORT INFORMATION
  Report Type: Spontaneous
  Country: US (occurrence: None)
  Receive Date: 20140103
  Receipt Date: 20140103
  Transmission Date: 20141002
  Serious: Yes (Life-Threatening, Hospitalization)
  Sender: FDA-Public Use
  Company Number: None

PATIENT
  Age: 69 Year
  Sex: Female
  Weight: 78 kg

DRUGS (1)
  1. CRIZOTINIB [Suspect]
     Route: 048
     Dates: start: 201309, end: 20131216

REACTIONS (3)
  - Blood creatine phosphokinase increased [None]
  - Generalised oedema [None]
  - Blood albumin decreased [None]
